FAERS Safety Report 8339079-3 (Version None)
Quarter: 2012Q2

REPORT INFORMATION
  Report Type: 
  Country: None (occurrence: None)
  Receive Date: 20120502
  Receipt Date: 20120420
  Transmission Date: 20120825
  Serious: Yes (Hospitalization)
  Sender: FDA-Public Use
  Company Number: TPA2012A02273

PATIENT
  Age: 81 Year
  Sex: Male

DRUGS (1)
  1. EDARBYCLOR [Suspect]
     Indication: HYPERTENSION

REACTIONS (1)
  - BLOOD SODIUM DECREASED [None]
